FAERS Safety Report 21021621 (Version 1)
Quarter: 2022Q2

REPORT INFORMATION
  Report Type: Other
  Country: NL (occurrence: NL)
  Receive Date: 20220629
  Receipt Date: 20220629
  Transmission Date: 20220721
  Serious: Yes (Death, Life-Threatening, Other)
  Sender: FDA-Public Use
  Company Number: NL-MILLENNIUM PHARMACEUTICALS, INC.-2010-06206

PATIENT

DRUGS (23)
  1. DEXAMETHASONE [Suspect]
     Active Substance: DEXAMETHASONE
     Indication: Product used for unknown indication
     Dosage: 0.5 MG, UNK
     Route: 048
     Dates: start: 20100913, end: 20100923
  2. VELCADE [Suspect]
     Active Substance: BORTEZOMIB
     Indication: Product used for unknown indication
     Dosage: 1 MG
     Route: 065
     Dates: start: 20100913, end: 20100923
  3. VENOFER [Concomitant]
     Active Substance: IRON SUCROSE
     Indication: Product used for unknown indication
     Dosage: UNK UNK, 2 DOSE WEEKLY
     Route: 065
  4. ZOLPIDEM [Concomitant]
     Active Substance: ZOLPIDEM TARTRATE
     Indication: Product used for unknown indication
     Dosage: 10 MG, QD
     Route: 048
  5. EBASTINE [Concomitant]
     Active Substance: EBASTINE
     Indication: Product used for unknown indication
     Dosage: 5 MILLIGRAM, QD
     Route: 065
  6. RENVELA [Concomitant]
     Active Substance: SEVELAMER CARBONATE
     Indication: Product used for unknown indication
     Dosage: 800 MG
     Route: 048
  7. RENVELA [Concomitant]
     Active Substance: SEVELAMER CARBONATE
     Dosage: 7200 MG, QD
     Route: 065
  8. .ALPHA.-TOCOPHEROL ACETATE [Concomitant]
     Active Substance: .ALPHA.-TOCOPHEROL ACETATE
     Indication: Product used for unknown indication
     Dosage: 50 MG, QD
     Route: 048
  9. ERYTHROPOIETIN [Concomitant]
     Active Substance: ERYTHROPOIETIN
     Indication: Product used for unknown indication
     Dosage: 6000 IU
     Route: 065
  10. ERYTHROPOIETIN [Concomitant]
     Active Substance: ERYTHROPOIETIN
     Dosage: 18000 IU, 1 DOSE WEEKLY
     Route: 065
  11. ALLOPURINOL [Concomitant]
     Active Substance: ALLOPURINOL
     Indication: Product used for unknown indication
     Dosage: 100 MG, QD
     Route: 065
  12. PANTOZOL [Concomitant]
     Active Substance: PANTOPRAZOLE SODIUM
     Indication: Product used for unknown indication
     Dosage: 40 MG, QD
     Route: 065
  13. AMLODIPINE [Concomitant]
     Active Substance: AMLODIPINE BESYLATE
     Indication: Product used for unknown indication
     Dosage: 10 MG, QD
     Route: 065
  14. FOSRENOL [Concomitant]
     Active Substance: LANTHANUM CARBONATE
     Indication: Product used for unknown indication
     Dosage: 2000 MG, QD
     Route: 065
  15. FOSRENOL [Concomitant]
     Active Substance: LANTHANUM CARBONATE
     Dosage: 1000 MG
     Route: 048
  16. MINOXIDIL [Concomitant]
     Active Substance: MINOXIDIL
     Indication: Product used for unknown indication
     Dosage: 5 MG
     Route: 065
  17. MINOXIDIL [Concomitant]
     Active Substance: MINOXIDIL
     Dosage: 5 MILLIGRAM, QD
     Route: 048
  18. ATACAND [Concomitant]
     Active Substance: CANDESARTAN CILEXETIL
     Indication: Product used for unknown indication
     Dosage: 16 MG, QD
     Route: 048
  19. FOSINOPRIL [Concomitant]
     Active Substance: FOSINOPRIL
     Indication: Product used for unknown indication
     Dosage: 10 MG
     Route: 048
  20. FOSINOPRIL [Concomitant]
     Active Substance: FOSINOPRIL
     Dosage: 20 MG, QD
     Route: 065
  21. VITAMINS NOS [Concomitant]
     Active Substance: VITAMINS
     Indication: Product used for unknown indication
     Dosage: UNK UNK, QD
     Route: 065
  22. LACTULOSE [Concomitant]
     Active Substance: LACTULOSE
     Indication: Product used for unknown indication
     Dosage: 15 ML, QD
     Route: 065
  23. COLCHICINE [Concomitant]
     Active Substance: COLCHICINE
     Indication: Product used for unknown indication
     Dosage: 0.5 MG
     Route: 048

REACTIONS (2)
  - Death [Fatal]
  - Hepatic function abnormal [Fatal]

NARRATIVE: CASE EVENT DATE: 20100101
